FAERS Safety Report 7707015-6 (Version None)
Quarter: 2011Q3

REPORT INFORMATION
  Report Type: 
  Country: None (occurrence: None)
  Receive Date: 20110824
  Receipt Date: 20110817
  Transmission Date: 20111222
  Serious: Yes (Other)
  Sender: FDA-Public Use
  Company Number: US-PFIZER INC-2011190777

PATIENT
  Sex: Female

DRUGS (2)
  1. NEURONTIN [Suspect]
     Indication: DEPRESSION
     Dosage: UNK
  2. RISPERDAL [Suspect]
     Dosage: UNK

REACTIONS (2)
  - HYPERTENSION [None]
  - HAEMATOCHEZIA [None]
